FAERS Safety Report 19974292 (Version 2)
Quarter: 2022Q1

REPORT INFORMATION
  Report Type: Spontaneous
  Country: US (occurrence: US)
  Receive Date: 20211020
  Receipt Date: 20220104
  Transmission Date: 20220423
  Serious: Yes (Other)
  Sender: FDA-Public Use
  Company Number: US-PFIZER INC-2021853084

PATIENT
  Age: 68 Year
  Sex: Female

DRUGS (1)
  1. XELJANZ XR [Suspect]
     Active Substance: TOFACITINIB CITRATE
     Dosage: 11MG

REACTIONS (3)
  - Myocardial infarction [Unknown]
  - Urinary tract infection [Unknown]
  - Speech disorder [Unknown]

NARRATIVE: CASE EVENT DATE: 20120101
